FAERS Safety Report 8009375-8 (Version None)
Quarter: 2011Q4

REPORT INFORMATION
  Report Type: 
  Country: None (occurrence: None)
  Receive Date: 20111227
  Receipt Date: 20111219
  Transmission Date: 20120403
  Serious: Yes (Hospitalization, Other)
  Sender: FDA-Public Use
  Company Number: US-ABBOTT-11P-163-0732248-00

PATIENT
  Sex: Female
  Weight: 88.53 kg

DRUGS (19)
  1. HUMIRA [Suspect]
     Indication: RHEUMATOID ARTHRITIS
     Dates: start: 20080601, end: 20110101
  2. SPIRONOLACTONE [Concomitant]
     Indication: HYPERTENSION
  3. PROTONIX [Concomitant]
     Indication: GASTROOESOPHAGEAL REFLUX DISEASE
  4. ACYCLOVIR [Concomitant]
     Indication: HERPES VIRUS INFECTION
  5. MAGNESIUM [Concomitant]
     Indication: MINERAL SUPPLEMENTATION
  6. SAVELLA [Concomitant]
     Indication: FIBROMYALGIA
  7. LEVOTHYROXINE SODIUM [Concomitant]
     Indication: HYPOTHYROIDISM
  8. POTASSIUM [Concomitant]
     Indication: MINERAL SUPPLEMENTATION
  9. LIPITOR [Concomitant]
     Indication: BLOOD CHOLESTEROL INCREASED
  10. BUPROPION [Concomitant]
     Indication: DEPRESSION
  11. TEMAZEPAM [Concomitant]
     Indication: PRODUCT USED FOR UNKNOWN INDICATION
  12. IBUPROFEN [Concomitant]
     Indication: PAIN
  13. ADVAIR DISKUS 100/50 [Concomitant]
     Indication: ASTHMA
  14. HUMIRA [Suspect]
     Dates: start: 20110601
  15. CARVEDILOL [Concomitant]
     Indication: HYPERTENSION
  16. NEXIUM [Concomitant]
     Indication: GASTROOESOPHAGEAL REFLUX DISEASE
  17. STOOL SOFTNER [Concomitant]
     Indication: PRODUCT USED FOR UNKNOWN INDICATION
  18. MELOXICAM [Concomitant]
     Indication: RHEUMATOID ARTHRITIS
  19. OXYGEN VIA CPAP [Concomitant]
     Indication: SLEEP APNOEA SYNDROME

REACTIONS (13)
  - JOINT SWELLING [None]
  - CLOSTRIDIAL INFECTION [None]
  - BLOOD PRESSURE DECREASED [None]
  - MALAISE [None]
  - LOSS OF CONSCIOUSNESS [None]
  - PNEUMONIA [None]
  - ARTHRALGIA [None]
  - DRUG INEFFECTIVE [None]
  - RESTLESS LEGS SYNDROME [None]
  - FATIGUE [None]
  - FEELING ABNORMAL [None]
  - HYPOTENSION [None]
  - UNEVALUABLE EVENT [None]
